FAERS Safety Report 6497700-9 (Version None)
Quarter: 2009Q4

REPORT INFORMATION
  Report Type: 
  Country: None (occurrence: None)
  Receive Date: 20091211
  Receipt Date: 20091208
  Transmission Date: 20100525
  Serious: Yes (Death)
  Sender: FDA-Public Use
  Company Number: 2009SP040537

PATIENT
  Sex: Male
  Weight: 61 kg

DRUGS (7)
  1. TEMODAL [Suspect]
     Indication: GLIOBLASTOMA MULTIFORME
     Dosage: 200 MG/M2; QD; PO 200 MG/M2; QD; PO 200 MG/M2; QD; PO 200 MG/M2; QD; PO 200 MG/M2; QD; PO 200 MG/M2;
     Route: 048
     Dates: start: 20060919, end: 20060923
  2. TEMODAL [Suspect]
     Indication: GLIOBLASTOMA MULTIFORME
     Dosage: 200 MG/M2; QD; PO 200 MG/M2; QD; PO 200 MG/M2; QD; PO 200 MG/M2; QD; PO 200 MG/M2; QD; PO 200 MG/M2;
     Route: 048
     Dates: start: 20061024, end: 20061028
  3. TEMODAL [Suspect]
     Indication: GLIOBLASTOMA MULTIFORME
     Dosage: 200 MG/M2; QD; PO 200 MG/M2; QD; PO 200 MG/M2; QD; PO 200 MG/M2; QD; PO 200 MG/M2; QD; PO 200 MG/M2;
     Route: 048
     Dates: start: 20061121, end: 20061125
  4. TEMODAL [Suspect]
     Indication: GLIOBLASTOMA MULTIFORME
     Dosage: 200 MG/M2; QD; PO 200 MG/M2; QD; PO 200 MG/M2; QD; PO 200 MG/M2; QD; PO 200 MG/M2; QD; PO 200 MG/M2;
     Route: 048
     Dates: start: 20070123, end: 20070127
  5. TEMODAL [Suspect]
     Indication: GLIOBLASTOMA MULTIFORME
     Dosage: 200 MG/M2; QD; PO 200 MG/M2; QD; PO 200 MG/M2; QD; PO 200 MG/M2; QD; PO 200 MG/M2; QD; PO 200 MG/M2;
     Route: 048
     Dates: start: 20070227, end: 20070303
  6. TEMODAL [Suspect]
     Indication: GLIOBLASTOMA MULTIFORME
     Dosage: 200 MG/M2; QD; PO 200 MG/M2; QD; PO 200 MG/M2; QD; PO 200 MG/M2; QD; PO 200 MG/M2; QD; PO 200 MG/M2;
     Route: 048
     Dates: start: 20070306, end: 20070310
  7. TEMODAL [Suspect]
     Indication: GLIOBLASTOMA MULTIFORME
     Dosage: 200 MG/M2; QD; PO 200 MG/M2; QD; PO 200 MG/M2; QD; PO 200 MG/M2; QD; PO 200 MG/M2; QD; PO 200 MG/M2;
     Route: 048
     Dates: start: 20061219, end: 20091223

REACTIONS (1)
  - DEATH [None]
